FAERS Safety Report 9465462 (Version 1)
Quarter: 2013Q3

REPORT INFORMATION
  Report Type: Spontaneous
  Country: JP (occurrence: JP)
  Receive Date: 20130820
  Receipt Date: 20130820
  Transmission Date: 20140515
  Serious: Yes (Hospitalization)
  Sender: FDA-Public Use
  Company Number: JP-009507513-1308JPN007880

PATIENT
  Age: 58 Year
  Sex: Male

DRUGS (5)
  1. JANUVIA TABLETS 50MG [Suspect]
     Dosage: DAILY DOSE UNKNOWN
     Route: 048
  2. JANUVIA TABLETS 50MG [Suspect]
     Dosage: 50 MG, QD, ONE IN THE MORNING
     Route: 048
  3. GLUFAST [Concomitant]
     Dosage: DAILY DOSAGE UNKNOWN USED IN SOME VERY EXTREME CASES IMMEDIATELY BEFORE FOOD
     Route: 048
  4. GLUCOBAY [Concomitant]
     Dosage: DAILY DOSAGE UNKNOWN USED IN SOME VERY EXTREME CASES IMMEDIATELY BEFORE FOOD
     Route: 048
  5. GLUCOBAY [Concomitant]
     Dosage: UNK

REACTIONS (3)
  - Adverse event [Recovering/Resolving]
  - Pollakiuria [Unknown]
  - Glycosylated haemoglobin increased [Recovering/Resolving]
